FAERS Safety Report 18030089 (Version 1)
Quarter: 2020Q3

REPORT INFORMATION
  Report Type: Spontaneous
  Country: FR (occurrence: FR)
  Receive Date: 20200715
  Receipt Date: 20200715
  Transmission Date: 20201103
  Serious: Yes (Hospitalization)
  Sender: FDA-Public Use
  Company Number: FR-TEVA-2020-FR-1800160

PATIENT
  Age: 66 Year
  Sex: Female

DRUGS (9)
  1. CALCIUM (CARBONATE DE) [Suspect]
     Active Substance: CALCIUM CARBONATE
     Indication: METASTATIC BONE DISEASE PROPHYLAXIS
     Dosage: 500 MG
     Route: 048
     Dates: start: 20191130
  2. ATENOLOL. [Concomitant]
     Active Substance: ATENOLOL
     Indication: HYPERTENSION
     Dosage: 50 MG MORNING AND EVENING, 100 MG
     Route: 048
  3. VERZENIOS 150 MG, COMPRIM? PELLICUL? [Suspect]
     Active Substance: ABEMACICLIB
     Indication: BREAST CANCER
     Dosage: 300 MG
     Route: 048
     Dates: start: 20191130
  4. XGEVA [Suspect]
     Active Substance: DENOSUMAB
     Indication: METASTATIC BONE DISEASE PROPHYLAXIS
     Dosage: 120 MG
     Route: 058
     Dates: start: 20191130
  5. IRBESARTAN. [Concomitant]
     Active Substance: IRBESARTAN
     Indication: HYPERTENSION
     Dosage: 150 MILLIGRAM DAILY;  IN THE MORNING
     Route: 048
  6. LOPERAMIDE (CHLORHYDRATE DE) [Suspect]
     Active Substance: LOPERAMIDE
     Indication: DIARRHOEA
     Dosage: 1 AFTER EACH LIQUID STOOL (MAX 4 / DAY), 1 DOSAGE FORMS
     Route: 048
     Dates: start: 20191130
  7. SMECTA [Suspect]
     Active Substance: MONTMORILLONITE
     Indication: DIARRHOEA
     Dosage: 1 TO 3 SACHETS PER DAY, 3 DOSAGE FORMS
     Route: 048
     Dates: start: 20191130
  8. DAFALGAN CODEINE [Concomitant]
     Active Substance: ACETAMINOPHEN\CODEINE PHOSPHATE
     Indication: PAIN
     Dosage: 3 TO 4 / DAY
     Route: 048
  9. FEMARA [Suspect]
     Active Substance: LETROZOLE
     Indication: BREAST CANCER
     Dosage: 2.5 MG
     Route: 048
     Dates: start: 20191130

REACTIONS (1)
  - Pulmonary embolism [Not Recovered/Not Resolved]

NARRATIVE: CASE EVENT DATE: 20200405
